FAERS Safety Report 8377701-6 (Version None)
Quarter: 2012Q2

REPORT INFORMATION
  Report Type: 
  Country: None (occurrence: None)
  Receive Date: 20120522
  Receipt Date: 20120515
  Transmission Date: 20120825
  Serious: Yes (Hospitalization)
  Sender: FDA-Public Use
  Company Number: US-GLAXOSMITHKLINE-A0976043A

PATIENT
  Age: 56 Year
  Sex: Female

DRUGS (2)
  1. TOPROL-XL [Concomitant]
  2. TYKERB [Suspect]
     Indication: BREAST CANCER
     Dosage: 1250MG PER DAY
     Route: 048
     Dates: start: 20110801

REACTIONS (4)
  - BRAIN NEOPLASM [None]
  - CONVULSION [None]
  - RADIATION INJURY [None]
  - BRAIN OEDEMA [None]
